FAERS Safety Report 5411236-5 (Version None)
Quarter: 2007Q3

REPORT INFORMATION
  Report Type: 
  Country: None (occurrence: None)
  Receive Date: 20070810
  Receipt Date: 20070731
  Transmission Date: 20080115
  Serious: Yes (Disabling)
  Sender: FDA-Public Use
  Company Number: B0482675A

PATIENT
  Age: 62 Year
  Sex: Male
  Weight: 105 kg

DRUGS (5)
  1. ROSIGLITAZONE [Suspect]
     Route: 048
     Dates: start: 20070101, end: 20070601
  2. LOSARTAN POTASSIUM [Concomitant]
     Route: 048
     Dates: start: 20020101
  3. NICORANDIL [Concomitant]
     Route: 048
     Dates: start: 20030101
  4. SIMVASTATIN [Concomitant]
     Route: 048
     Dates: start: 20030101
  5. TILDIEM [Concomitant]
     Route: 048
     Dates: start: 20030101

REACTIONS (1)
  - ANGINA PECTORIS [None]
